FAERS Safety Report 4431802-3 (Version None)
Quarter: 2004Q3

REPORT INFORMATION
  Report Type: 
  Country: None (occurrence: None)
  Receive Date: 20040818
  Receipt Date: 20040809
  Transmission Date: 20050211
  Serious: Yes (Life-Threatening)
  Sender: FDA-Public Use
  Company Number: BRO-007615

PATIENT
  Age: 85 Year
  Sex: Male

DRUGS (3)
  1. IOPAMIDOL / IOPAMIRON 370 [Suspect]
     Indication: ARTERIOGRAM CORONARY
     Dosage: 100 ML ; INTRACORONARY
     Route: 022
     Dates: start: 20040617, end: 20040617
  2. CEFCAPENE PIVOXIL HYDROCHLORIDE / FLOXMOX (BATCH # (S) [Suspect]
     Indication: AGE INDETERMINATE MYOCARDIAL INFARCTION
     Dosage: PO
     Route: 048
     Dates: start: 20040617, end: 20040617
  3. CEFCAPENE PIVOXIL HYDROCHLORIDE / FLOXMOX (BATCH # (S) [Suspect]
     Indication: INFECTION PROPHYLAXIS
     Dosage: PO
     Route: 048
     Dates: start: 20040617, end: 20040617

REACTIONS (4)
  - ANOREXIA [None]
  - FUNGAL INFECTION [None]
  - OESOPHAGEAL INFECTION [None]
  - STEVENS-JOHNSON SYNDROME [None]
